FAERS Safety Report 7215401-6 (Version None)
Quarter: 2011Q1

REPORT INFORMATION
  Report Type: 
  Country: None (occurrence: None)
  Receive Date: 20110107
  Receipt Date: 20101230
  Transmission Date: 20110831
  Serious: Yes (Hospitalization)
  Sender: FDA-Public Use
  Company Number: CA-JNJFOC-20110100287

PATIENT
  Sex: Male

DRUGS (12)
  1. PREDNISONE [Concomitant]
  2. ALENDRONATE [Concomitant]
  3. CALCIUM [Concomitant]
  4. ASPIRIN [Concomitant]
  5. OXYCET [Concomitant]
  6. REMICADE [Suspect]
     Indication: RHEUMATOID ARTHRITIS
     Route: 042
  7. METOPROLOL [Concomitant]
  8. NAPROXEN [Concomitant]
  9. WARFARIN [Concomitant]
  10. LEFLUNOMIDE [Concomitant]
  11. VIT D [Concomitant]
  12. OMEPRAZOLE [Concomitant]

REACTIONS (2)
  - KNEE ARTHROPLASTY [None]
  - INFECTION [None]
